FAERS Safety Report 24693129 (Version 7)
Quarter: 2025Q4

REPORT INFORMATION
  Report Type: Report from Study
  Country: US (occurrence: US)
  Receive Date: 20241203
  Receipt Date: 20251009
  Transmission Date: 20260117
  Serious: Yes (Other)
  Sender: UCB
  Company Number: US-UCBSA-2024061327

PATIENT
  Age: 27 Year
  Sex: Male
  Weight: 105 kg

DRUGS (5)
  1. FINTEPLA [Suspect]
     Active Substance: FENFLURAMINE
     Indication: Seizure
     Dosage: 48.4 MILLIGRAM (48.4 MILLIGRAM PER DAY)
     Dates: start: 20230720
  2. FINTEPLA [Suspect]
     Active Substance: FENFLURAMINE
     Indication: Lennox-Gastaut syndrome
     Dosage: 52.8 MILLIGRAM PER DAY
  3. FINTEPLA [Suspect]
     Active Substance: FENFLURAMINE
     Dosage: 20 MG/DAY
  4. FINTEPLA [Suspect]
     Active Substance: FENFLURAMINE
     Dosage: 44 MG/DAY
  5. FINTEPLA [Suspect]
     Active Substance: FENFLURAMINE
     Dosage: 12 MILLILITER, 2X/DAY (BID)
     Route: 048

REACTIONS (5)
  - Pericardial effusion [Not Recovered/Not Resolved]
  - Agitation [Unknown]
  - Hypokinesia [Not Recovered/Not Resolved]
  - Anxiety [Unknown]
  - Off label use [Unknown]

NARRATIVE: CASE EVENT DATE: 20230720
